FAERS Safety Report 4610836-X (Version None)
Quarter: 2005Q1

REPORT INFORMATION
  Report Type: 
  Country: None (occurrence: None)
  Receive Date: 20050317
  Receipt Date: 20050314
  Transmission Date: 20050727
  Serious: Yes (Hospitalization)
  Sender: FDA-Public Use
  Company Number: FR-RB-1399-2005

PATIENT
  Age: 26 Year
  Sex: Male
  Weight: 70 kg

DRUGS (1)
  1. BUPRENORPHINE HCL [Suspect]
     Indication: DRUG USE FOR UNKNOWN INDICATION
     Route: 042

REACTIONS (12)
  - ABSCESS [None]
  - ENDOCARDITIS [None]
  - HEPATITIS C [None]
  - HEPATITIS NON-A NON-B [None]
  - HIV TEST POSITIVE [None]
  - INTENTIONAL MISUSE [None]
  - NEPHROTIC SYNDROME [None]
  - OSTEOMYELITIS [None]
  - PYOTHORAX [None]
  - SEPTIC SHOCK [None]
  - STAPHYLOCOCCAL SEPSIS [None]
  - TRICUSPID VALVE INCOMPETENCE [None]
